FAERS Safety Report 23112584 (Version 2)
Quarter: 2023Q4

REPORT INFORMATION
  Report Type: Spontaneous
  Country: CA (occurrence: CA)
  Receive Date: 20231027
  Receipt Date: 20231206
  Transmission Date: 20240110
  Serious: Yes (Hospitalization, Other)
  Sender: FDA-Public Use
  Company Number: CA-TAKEDA-2023TUS096511

PATIENT
  Sex: Male
  Weight: 70 kg

DRUGS (5)
  1. MARIBAVIR [Suspect]
     Active Substance: MARIBAVIR
     Indication: Product used for unknown indication
     Dosage: UNK
     Route: 065
  2. LIVTENCITY [Suspect]
     Active Substance: MARIBAVIR
     Indication: Cytomegalovirus infection
     Dosage: UNK, BID
     Route: 048
     Dates: start: 20230706, end: 20230815
  3. FOSCARNET [Concomitant]
     Active Substance: FOSCARNET
     Indication: Cytomegalovirus viraemia
     Dosage: 3168 MILLIGRAM, Q12H
     Route: 042
     Dates: start: 20230612, end: 20230619
  4. FOSCARNET [Concomitant]
     Active Substance: FOSCARNET
     Dosage: 4000 MILLIGRAM, QD
     Route: 042
     Dates: start: 20230627, end: 20230705
  5. GANCICLOVIR [Concomitant]
     Active Substance: GANCICLOVIR
     Indication: Cytomegalovirus viraemia
     Dosage: 400 MILLIGRAM, Q12H
     Route: 042
     Dates: start: 20230620, end: 20230627

REACTIONS (3)
  - Viral load increased [Recovered/Resolved]
  - Cytomegalovirus infection [Unknown]
  - Drug resistance [Unknown]
